FAERS Safety Report 12165430 (Version 1)
Quarter: 2016Q1

REPORT INFORMATION
  Report Type: Spontaneous
  Country: US (occurrence: US)
  Receive Date: 20160309
  Receipt Date: 20160309
  Transmission Date: 20160526
  Serious: Yes (Death, Other)
  Sender: FDA-Public Use
  Company Number: US-PFIZER INC-2016139186

PATIENT
  Age: 6 Year
  Sex: Male

DRUGS (1)
  1. CHLORAMPHENICOL [Suspect]
     Active Substance: CHLORAMPHENICOL
     Indication: PNEUMONIA
     Dosage: 1.5 G, DAILY

REACTIONS (1)
  - Aplastic anaemia [Fatal]
